FAERS Safety Report 7783123-9 (Version None)
Quarter: 2011Q3

REPORT INFORMATION
  Report Type: 
  Country: None (occurrence: None)
  Receive Date: 20110928
  Receipt Date: 20110923
  Transmission Date: 20111222
  Serious: Yes (Death, Hospitalization)
  Sender: FDA-Public Use
  Company Number: PHHY2011TH83743

PATIENT
  Sex: Male

DRUGS (3)
  1. GLEEVEC [Suspect]
     Dosage: 600 MG PER DAY
     Route: 048
  2. GLEEVEC [Suspect]
     Dosage: 400 MG PER DAY
     Route: 048
     Dates: start: 20110827
  3. GLEEVEC [Suspect]
     Indication: CHRONIC MYELOID LEUKAEMIA
     Dosage: 400 MG, UNK
     Route: 048
     Dates: start: 20110224

REACTIONS (4)
  - DRUG INEFFECTIVE [None]
  - APHAGIA [None]
  - DEATH [None]
  - ASTHENIA [None]
